FAERS Safety Report 4721919-8 (Version None)
Quarter: 2005Q3

REPORT INFORMATION
  Report Type: 
  Country: None (occurrence: None)
  Receive Date: 20050722
  Receipt Date: 20030505
  Transmission Date: 20060218
  Serious: Yes (Other)
  Sender: FDA-Public Use
  Company Number: US-AMGEN-US041672

PATIENT
  Sex: Female

DRUGS (16)
  1. ENBREL [Suspect]
     Indication: RHEUMATOID ARTHRITIS
     Route: 058
     Dates: start: 20030128, end: 20030203
  2. ENBREL [Suspect]
     Route: 058
     Dates: start: 20030319, end: 20030403
  3. METHOTREXATE [Concomitant]
     Route: 048
     Dates: start: 20011001
  4. GLUCOVANCE [Concomitant]
  5. HYDROCHLOROTHIAZIDE [Concomitant]
     Dates: start: 20030201
  6. ACTOS [Concomitant]
  7. PREMARIN [Concomitant]
  8. LIPITOR [Concomitant]
  9. CALCIUM GLUCONATE [Concomitant]
  10. FOLIC ACID [Concomitant]
     Dates: start: 20011001
  11. COZAAR [Concomitant]
  12. LANOXIN [Concomitant]
  13. PREVACID [Concomitant]
  14. ACEBUTOLOL [Concomitant]
  15. LEUCOVORIN [Concomitant]
  16. LEXAPRO [Concomitant]
     Dates: start: 20030401

REACTIONS (2)
  - HYPOAESTHESIA ORAL [None]
  - URTICARIA [None]
